FAERS Safety Report 5199133-4 (Version None)
Quarter: 2006Q4

REPORT INFORMATION
  Report Type: 
  Country: None (occurrence: None)
  Receive Date: 20060919
  Receipt Date: 20060427
  Transmission Date: 20070319
  Serious: Yes (Other)
  Sender: FDA-Public Use
  Company Number: HQWYE120902MAY06

PATIENT
  Age: 14 Year
  Sex: Female

DRUGS (1)
  1. ADVIL [Suspect]
     Indication: MIGRAINE
     Dosage: 2 CAPSULES AS NEEDED, ORAL
     Route: 048

REACTIONS (2)
  - BURNING SENSATION [None]
  - MEDICATION ERROR [None]
